FAERS Safety Report 7641380-3 (Version None)
Quarter: 2011Q3

REPORT INFORMATION
  Report Type: 
  Country: None (occurrence: None)
  Receive Date: 20110727
  Receipt Date: 20110727
  Transmission Date: 20111222
  Serious: Yes (Other)
  Sender: FDA-Public Use
  Company Number: None

PATIENT
  Age: 49 Year
  Sex: Female

DRUGS (1)
  1. LAMOTRGINE [Suspect]
     Indication: DYSTHYMIC DISORDER
     Dosage: 200 MG (2 PO DAILY) 400 MG DAILY
     Route: 048
     Dates: start: 20060701

REACTIONS (2)
  - PRODUCT SUBSTITUTION ISSUE [None]
  - CONTUSION [None]
